FAERS Safety Report 7962839-5 (Version None)
Quarter: 2011Q4

REPORT INFORMATION
  Report Type: 
  Country: None (occurrence: None)
  Receive Date: 20111207
  Receipt Date: 20111206
  Transmission Date: 20120403
  Serious: Yes (Life-Threatening, Hospitalization, Other)
  Sender: FDA-Public Use
  Company Number: DE-PFIZER INC-2011118626

PATIENT
  Age: 70 Year
  Sex: Male
  Weight: 77 kg

DRUGS (15)
  1. RAMIPRIL [Suspect]
     Dosage: 2.5MG, 1X/DAY
     Dates: start: 20110104, end: 20110619
  2. GENTAMICIN SULFATE [Interacting]
     Dosage: 240 MG, DAILY
     Dates: start: 20110105, end: 20110119
  3. FENISTIL [Concomitant]
     Dosage: 3 X 1 MG DAILY
     Route: 048
     Dates: start: 20110110, end: 20110118
  4. MIDAZOLAM [Concomitant]
     Dosage: 5 MG, 1X/DAY
     Route: 042
     Dates: start: 20110102, end: 20110102
  5. FENISTIL [Concomitant]
     Dosage: 1 MG, 1X/DAY
     Route: 048
     Dates: start: 20110108, end: 20110108
  6. RAMIPRIL [Suspect]
     Dosage: 2.5 MG, 1X/DAY
     Route: 049
     Dates: start: 20100201, end: 20110102
  7. GENTAMICIN SULFATE [Interacting]
     Indication: ENDOCARDITIS
     Dosage: 80 MG, UNK
     Route: 042
     Dates: start: 20110103, end: 20110103
  8. MIDAZOLAM [Concomitant]
     Dosage: 4.5 MG, 1X/DAY
     Route: 042
     Dates: start: 20110113, end: 20110113
  9. CLINDAMYCIN HCL [Concomitant]
     Dosage: 600 - 1200 MG DAILY
     Route: 042
     Dates: start: 20110109, end: 20110113
  10. GENTAMICIN SULFATE [Interacting]
     Dosage: 160 MG, UNK
     Dates: start: 20110104, end: 20110104
  11. PROTAPHAN [Concomitant]
     Dosage: UNK, AS NEEDED
     Route: 058
     Dates: start: 19950101
  12. FRAXIPARIN [Concomitant]
     Dosage: 2850 IU, 1X/DAY
     Route: 058
     Dates: start: 20110116, end: 20110116
  13. FRAXIPARIN [Concomitant]
     Dosage: 2850 IU, 1X/DAY
     Route: 058
     Dates: start: 20110104, end: 20110109
  14. ZINACEF [Interacting]
     Indication: ENDOCARDITIS
     Dosage: 1.5 - 3 G DAILY
     Route: 042
     Dates: start: 20110113, end: 20110119
  15. MIDAZOLAM [Concomitant]
     Dosage: UNK
     Route: 042
     Dates: start: 20110101, end: 20110101

REACTIONS (4)
  - RENAL FAILURE ACUTE [None]
  - ENDOCARDITIS [None]
  - DRUG INTERACTION [None]
  - EMPYEMA [None]
